FAERS Safety Report 8314471-1 (Version None)
Quarter: 2012Q2

REPORT INFORMATION
  Report Type: 
  Country: None (occurrence: None)
  Receive Date: 20120426
  Receipt Date: 20120418
  Transmission Date: 20120825
  Serious: Yes (Death, Other)
  Sender: FDA-Public Use
  Company Number: CA-ACTELION-A-US2012-64382

PATIENT

DRUGS (1)
  1. TRACLEER [Suspect]
     Indication: PULMONARY ARTERIAL HYPERTENSION
     Route: 048

REACTIONS (4)
  - HAEMATEMESIS [None]
  - DEATH [None]
  - GASTROINTESTINAL HAEMORRHAGE [None]
  - PANCREATITIS [None]
